FAERS Safety Report 25761596 (Version 1)
Quarter: 2025Q3

REPORT INFORMATION
  Report Type: Spontaneous
  Country: US (occurrence: None)
  Receive Date: 20250903
  Receipt Date: 20250903
  Transmission Date: 20251020
  Serious: Yes (Other)
  Sender: FDA-CTU
  Company Number: None

PATIENT
  Age: 17 Year
  Sex: Male
  Weight: 55.6 kg

DRUGS (1)
  1. CALASPARGASE PEGOL-MKNL [Suspect]
     Active Substance: CALASPARGASE PEGOL-MKNL

REACTIONS (2)
  - Infusion related reaction [None]
  - Anaphylactic reaction [None]

NARRATIVE: CASE EVENT DATE: 20250828
